FAERS Safety Report 5792883-8 (Version None)
Quarter: 2008Q2

REPORT INFORMATION
  Report Type: 
  Country: None (occurrence: None)
  Receive Date: 20080624
  Receipt Date: 20080610
  Transmission Date: 20081010
  Serious: Yes (Hospitalization, Other)
  Sender: FDA-Public Use
  Company Number: 2008S1009976

PATIENT
  Age: 41 Year
  Sex: Female

DRUGS (4)
  1. FENTANYL TRANSDERMAL SYSTEM [Suspect]
     Indication: BACK PAIN
     Dosage: 75 UG;EVERY HOUR; TRANSDERMAL
     Route: 062
     Dates: start: 20080522
  2. PERCOCET [Concomitant]
  3. KLONOPIN [Concomitant]
  4. PHENOBARBITAL TAB [Concomitant]

REACTIONS (2)
  - BACK PAIN [None]
  - DRUG INEFFECTIVE [None]
